FAERS Safety Report 16424800 (Version 1)
Quarter: 2019Q2

REPORT INFORMATION
  Report Type: Spontaneous
  Country: GB (occurrence: GB)
  Receive Date: 20190613
  Receipt Date: 20190613
  Transmission Date: 20190711
  Serious: Yes (Life-Threatening)
  Sender: FDA-Public Use
  Company Number: GB-PFIZER INC-2019248472

PATIENT
  Age: 93 Year
  Sex: Female

DRUGS (1)
  1. LORAZEPAM. [Suspect]
     Active Substance: LORAZEPAM
     Indication: GENERALISED TONIC-CLONIC SEIZURE
     Dosage: 1 MG, UNK

REACTIONS (4)
  - Atrioventricular block [Recovered/Resolved]
  - Hypotension [Unknown]
  - Heart rate decreased [Unknown]
  - Oxygen saturation decreased [Unknown]
